FAERS Safety Report 4462420-9 (Version None)
Quarter: 2004Q3

REPORT INFORMATION
  Report Type: 
  Country: None (occurrence: None)
  Receive Date: 20040928
  Receipt Date: 20040917
  Transmission Date: 20050211
  Serious: Yes (Death, Life-Threatening)
  Sender: FDA-Public Use
  Company Number: STA-AE-04-MTX-416

PATIENT
  Age: 83 Year
  Sex: Female

DRUGS (20)
  1. RHEUMATREX [Suspect]
     Indication: RHEUMATOID ARTHRITIS
     Dosage: 6 MG 1 X PER 1 WK, ORAL
     Route: 048
     Dates: start: 20020201, end: 20040206
  2. LOXONIN (LOXOPROFEN SODIUM) [Suspect]
     Indication: RHEUMATOID ARTHRITIS
     Dosage: ORAL
     Route: 048
     Dates: end: 20040303
  3. REMICADE [Suspect]
     Indication: RHEUMATOID ARTHRITIS
     Dosage: 3 MG/KG 1 X PER 1 DAY, INTRAVENOUS
     Route: 042
     Dates: start: 20040122, end: 20040122
  4. VOLTAREN [Suspect]
     Indication: RHEUMATOID ARTHRITIS
     Dates: end: 20040310
  5. PREDNISOLONE [Concomitant]
  6. SUMIFON (SONIAZID) [Concomitant]
  7. BETAMETHASONE [Concomitant]
  8. ALPROSTADIL [Concomitant]
  9. SOLU-MEDROL [Concomitant]
  10. PREDNISOLONE SODIUM PHOSPHATE [Concomitant]
  11. BENET (RISEDRONIC ACID) [Concomitant]
  12. HALCION [Concomitant]
  13. DORAL [Concomitant]
  14. AMLODIPINE BESYLATE [Concomitant]
  15. MICARDIS [Concomitant]
  16. PURSENNID (SENNA LEAF) [Concomitant]
  17. STOMACHIC MIXTURE/THA/ (CARDAMOM OIL/HERBAL EXTRACTS NOS/RHUBARB TINCT [Concomitant]
  18. MAGNESIUM OXIDE (MAGNESIUM OXIDE) [Concomitant]
  19. GASTER (FAMOTIDINE) [Concomitant]
  20. FOLIC ACID [Concomitant]

REACTIONS (4)
  - IMMUNOGLOBULINS ABNORMAL [None]
  - PANCYTOPENIA [None]
  - RENAL DISORDER [None]
  - RESPIRATORY FAILURE [None]
